FAERS Safety Report 21244821 (Version 1)
Quarter: 2022Q3

REPORT INFORMATION
  Report Type: Spontaneous
  Country: US (occurrence: None)
  Receive Date: 20220822
  Receipt Date: 20220822
  Transmission Date: 20221027
  Serious: Yes (Hospitalization)
  Sender: FDA-Public Use
  Company Number: None

PATIENT
  Age: 20 Year
  Sex: Male

DRUGS (1)
  1. ADAKVEO [Suspect]
     Active Substance: CRIZANLIZUMAB-TMCA
     Indication: Product used for unknown indication
     Dosage: FREQUENCY : MONTHLY;?
     Route: 042
     Dates: start: 20201021

REACTIONS (4)
  - Sickle cell anaemia with crisis [None]
  - Weight increased [None]
  - COVID-19 [None]
  - Intentional dose omission [None]

NARRATIVE: CASE EVENT DATE: 20220817
